FAERS Safety Report 12884611 (Version 1)
Quarter: 2016Q4

REPORT INFORMATION
  Report Type: Spontaneous
  Country: US (occurrence: US)
  Receive Date: 20161026
  Receipt Date: 20161026
  Transmission Date: 20170207
  Serious: No
  Sender: FDA-Public Use
  Company Number: US-PFIZER INC-2016491718

PATIENT
  Age: 76 Year
  Sex: Female
  Weight: 95.3 kg

DRUGS (1)
  1. ARTHROTEC [Suspect]
     Active Substance: DICLOFENAC SODIUM\MISOPROSTOL
     Indication: INFLAMMATION
     Dosage: UNK
     Dates: start: 2000

REACTIONS (2)
  - Intentional product use issue [Unknown]
  - Drug ineffective [Unknown]
